FAERS Safety Report 8585409-7 (Version None)
Quarter: 2012Q3

REPORT INFORMATION
  Report Type: 
  Country: None (occurrence: None)
  Receive Date: 20120810
  Receipt Date: 20120801
  Transmission Date: 20120928
  Serious: Yes (Other)
  Sender: FDA-Public Use
  Company Number: US-009507513-1208USA000319

PATIENT

DRUGS (3)
  1. RECLAST [Suspect]
     Dosage: UNK
     Dates: start: 20080901
  2. FOSAMAX [Suspect]
     Dosage: 70 MG, UNK
     Dates: start: 20021014, end: 20080801
  3. FORTEO [Suspect]
     Dosage: UNK
     Dates: start: 20101201

REACTIONS (5)
  - FEMORAL NERVE INJURY [None]
  - FEMUR FRACTURE [None]
  - WOUND INFECTION STAPHYLOCOCCAL [None]
  - FRACTURE NONUNION [None]
  - DEVICE MALFUNCTION [None]
